FAERS Safety Report 6767630-3 (Version None)
Quarter: 2010Q2

REPORT INFORMATION
  Report Type: 
  Country: None (occurrence: None)
  Receive Date: 20100610
  Receipt Date: 20100601
  Transmission Date: 20101027
  Serious: Yes (Disabling)
  Sender: FDA-Public Use
  Company Number: 1022556-2010-00033

PATIENT
  Age: 55 Year
  Sex: Female
  Weight: 74.8435 kg

DRUGS (7)
  1. SELSUN BLUE ITCHY SCALP 11 OZ [Suspect]
     Indication: PROPHYLAXIS
     Dosage: TOPICAL
     Route: 061
     Dates: start: 20100516
  2. LOPRESSOR [Concomitant]
  3. LYRICA [Concomitant]
  4. ZOLOFT [Concomitant]
  5. LIBRAX [Concomitant]
  6. XIBROM [Concomitant]
  7. BESIVANCE [Concomitant]

REACTIONS (7)
  - BLINDNESS [None]
  - EYE IRRITATION [None]
  - EYE PAIN [None]
  - HYPOAESTHESIA ORAL [None]
  - MYDRIASIS [None]
  - OCULAR HYPERAEMIA [None]
  - PHOTOPHOBIA [None]
